FAERS Safety Report 17794000 (Version 1)
Quarter: 2020Q2

REPORT INFORMATION
  Report Type: Spontaneous
  Country: DE (occurrence: DE)
  Receive Date: 20200515
  Receipt Date: 20200515
  Transmission Date: 20200714
  Serious: Yes (Hospitalization)
  Sender: FDA-Public Use
  Company Number: DE-TEVA-2020-DE-1234387

PATIENT
  Age: 50 Year
  Sex: Female

DRUGS (3)
  1. FLUTICASON/SALMETEROL [Concomitant]
     Dosage: 250|50 MCG, 1-0-1-0
  2. CEFPODOXIM [Suspect]
     Active Substance: CEFPODOXIME PROXETIL
     Dates: start: 20200122
  3. METRONIDAZOL [Suspect]
     Active Substance: METRONIDAZOLE
     Dates: start: 20200122

REACTIONS (8)
  - Swollen tongue [Unknown]
  - Feeling hot [Unknown]
  - Dry skin [Unknown]
  - Nausea [Unknown]
  - Hyperhidrosis [Unknown]
  - Periorbital oedema [Unknown]
  - Oropharyngeal swelling [Unknown]
  - Dizziness [Unknown]
